FAERS Safety Report 16172774 (Version 1)
Quarter: 2019Q2

REPORT INFORMATION
  Report Type: Other
  Country: TR (occurrence: TR)
  Receive Date: 20190409
  Receipt Date: 20190409
  Transmission Date: 20190711
  Serious: Yes (Life-Threatening, Hospitalization)
  Sender: FDA-Public Use
  Company Number: TR-FDC LIMITED-2065522

PATIENT
  Age: 76 Year
  Sex: Female

DRUGS (1)
  1. CIPROFLOXACIN. [Suspect]
     Active Substance: CIPROFLOXACIN
     Indication: OROPHARYNGEAL PAIN
     Route: 065

REACTIONS (2)
  - Foreign body aspiration [Recovered/Resolved]
  - Condition aggravated [Recovered/Resolved]
